FAERS Safety Report 22203179 (Version 2)
Quarter: 2023Q2

REPORT INFORMATION
  Report Type: Spontaneous
  Country: None (occurrence: US)
  Receive Date: 20230412
  Receipt Date: 20230609
  Transmission Date: 20230722
  Serious: No
  Sender: FDA-Public Use
  Company Number: US-Ascent Pharmaceuticals, Inc.-2140210

PATIENT
  Age: 52 Year
  Sex: Female
  Weight: 72.727 kg

DRUGS (3)
  1. DEXTROAMPHET SACCHARAT, AMPHET ASPARTATE, DEXTROAMPHET SULFATE AND AMP [Suspect]
     Active Substance: AMPHETAMINE ASPARTATE\AMPHETAMINE ASPARTATE MONOHYDRATE\AMPHETAMINE SULFATE\DEXTROAMPHETAMINE SACCHA
     Indication: Attention deficit hyperactivity disorder
     Route: 065
     Dates: start: 20230302, end: 20230316
  2. FOLIC ACID [Concomitant]
     Active Substance: FOLIC ACID
     Route: 065
  3. Vitamin B1 supplements [Concomitant]
     Route: 065

REACTIONS (10)
  - Headache [Unknown]
  - Somnolence [Unknown]
  - Malaise [Unknown]
  - Dizziness [Unknown]
  - Agitation [Unknown]
  - Aggression [Unknown]
  - Migraine [Unknown]
  - Nausea [Unknown]
  - Product substitution issue [Unknown]
  - Suspected product quality issue [Unknown]
